FAERS Safety Report 4360576-X (Version None)
Quarter: 2004Q2

REPORT INFORMATION
  Report Type: 
  Country: None (occurrence: None)
  Receive Date: 20040519
  Receipt Date: 20040511
  Transmission Date: 20050107
  Serious: Yes (Other)
  Sender: FDA-Public Use
  Company Number: PHNU2004DE01786

PATIENT
  Age: 11 Year
  Sex: Female

DRUGS (1)
  1. AREDIA [Suspect]
     Indication: LEUKAEMIA
     Route: 065

REACTIONS (1)
  - ARRHYTHMIA [None]
